FAERS Safety Report 18044300 (Version 1)
Quarter: 2020Q3

REPORT INFORMATION
  Report Type: Spontaneous
  Country: US (occurrence: US)
  Receive Date: 20200720
  Receipt Date: 20200720
  Transmission Date: 20201103
  Serious: Yes (Death)
  Sender: FDA-Public Use
  Company Number: None

PATIENT
  Age: 69 Year
  Sex: Male
  Weight: 96.6 kg

DRUGS (14)
  1. FENTANYL. [Concomitant]
     Active Substance: FENTANYL
     Dates: start: 20200717, end: 20200717
  2. ALBUMIN [Concomitant]
     Active Substance: ALBUMIN HUMAN
     Dates: start: 20200717, end: 20200717
  3. REMDESIVIR. [Suspect]
     Active Substance: REMDESIVIR
     Indication: COVID-19 PNEUMONIA
     Route: 042
     Dates: start: 20200716, end: 20200717
  4. DEXAMETHASONE. [Concomitant]
     Active Substance: DEXAMETHASONE
     Dates: start: 20200714, end: 20200717
  5. MELATONIN [Concomitant]
     Active Substance: MELATONIN
     Dates: start: 20200716, end: 20200717
  6. CEFTRIAXONE. [Concomitant]
     Active Substance: CEFTRIAXONE
     Dates: start: 20200414, end: 20200416
  7. MIDAZOLAM. [Concomitant]
     Active Substance: MIDAZOLAM
     Dates: start: 20200717, end: 20200717
  8. NOREPINEPHRINE. [Concomitant]
     Active Substance: NOREPINEPHRINE
     Dates: start: 20200717, end: 20200717
  9. MORPHINE [Concomitant]
     Active Substance: MORPHINE
     Dates: start: 20200716, end: 20200717
  10. PROPOFOL. [Concomitant]
     Active Substance: PROPOFOL
     Dates: start: 20200717, end: 20200717
  11. HEPARIN [Concomitant]
     Active Substance: HEPARIN SODIUM
     Dates: start: 20200714, end: 20200717
  12. INSULIN LISPRO [Concomitant]
     Active Substance: INSULIN LISPRO
     Dates: start: 20200714, end: 20200717
  13. OCULAR LUBRICANT [Concomitant]
     Dates: start: 20200717, end: 20200717
  14. LACTATED RINGERS SOLUTION [Concomitant]
     Active Substance: CALCIUM CHLORIDE\POTASSIUM CHLORIDE\SODIUM CHLORIDE\SODIUM LACTATE
     Dates: start: 20200715, end: 20200717

REACTIONS (5)
  - Pulseless electrical activity [None]
  - Metabolic acidosis [None]
  - Respiratory failure [None]
  - Sepsis [None]
  - COVID-19 pneumonia [None]

NARRATIVE: CASE EVENT DATE: 20200717
